FAERS Safety Report 6982284-9 (Version None)
Quarter: 2010Q3

REPORT INFORMATION
  Report Type: 
  Country: None (occurrence: None)
  Receive Date: 20100914
  Receipt Date: 20091221
  Transmission Date: 20110219
  Serious: No
  Sender: FDA-Public Use
  Company Number: US-PFIZER INC-2009313596

PATIENT
  Sex: Female

DRUGS (2)
  1. LYRICA [Suspect]
     Indication: ARTHRITIS
     Dosage: 75 MG, 2X/DAY
     Route: 048
     Dates: end: 20091219
  2. ULTRACET [Concomitant]
     Indication: ARTHRITIS
     Dosage: UNK

REACTIONS (8)
  - ARTHRALGIA [None]
  - CHEST PAIN [None]
  - HEADACHE [None]
  - HYPERSENSITIVITY [None]
  - JOINT SWELLING [None]
  - LOCAL SWELLING [None]
  - PYREXIA [None]
  - SWELLING [None]
